FAERS Safety Report 9639912 (Version 4)
Quarter: 2013Q4

REPORT INFORMATION
  Report Type: Spontaneous
  Country: CO (occurrence: CO)
  Receive Date: 20131023
  Receipt Date: 20131025
  Transmission Date: 20140711
  Serious: Yes (Death, Hospitalization)
  Sender: FDA-Public Use
  Company Number: CO-VERTEX PHARMACEUTICALS INC-2013-010310

PATIENT
  Age: 54 Year
  Sex: Female

DRUGS (4)
  1. INCIVO [Suspect]
     Indication: HEPATITIS C
     Dosage: 1125 MG, BID
     Route: 048
     Dates: start: 20131004, end: 20131016
  2. RIBAVIRIN [Suspect]
     Indication: HEPATITIS C
     Dosage: 200 MG, 5 DOSAGES/DAY
     Route: 048
     Dates: start: 20131004, end: 20131016
  3. INTERFERON [Suspect]
     Indication: HEPATITIS C
     Dosage: 70 ?G, Q8DAYS
     Route: 058
     Dates: start: 20131004, end: 20131016
  4. CYCLOSPORINE [Concomitant]
     Indication: PRODUCT USED FOR UNKNOWN INDICATION
     Dosage: 50 MG, BID
     Route: 048
     Dates: start: 2011

REACTIONS (5)
  - Cerebral haematoma [Fatal]
  - Cerebrovascular disorder [Fatal]
  - Headache [Recovered/Resolved]
  - Off label use [Unknown]
  - Vomiting [Recovered/Resolved]
